FAERS Safety Report 8418244-0 (Version None)
Quarter: 2012Q2

REPORT INFORMATION
  Report Type: 
  Country: None (occurrence: None)
  Receive Date: 20120531
  Receipt Date: 20120518
  Transmission Date: 20120825
  Serious: Yes (Other)
  Sender: FDA-Public Use
  Company Number: AUR-APL-2012-02202

PATIENT
  Age: 43 Year
  Sex: Male

DRUGS (6)
  1. IBUPROFEN [Suspect]
     Indication: BACK PAIN
     Dosage: UNKNOWN
  2. LAMOTRIGINE [Suspect]
     Indication: PRODUCT USED FOR UNKNOWN INDICATION
     Dosage: 200 MG (200 MG, 1 IN 1 D)
  3. CLOZAPINE [Suspect]
     Indication: PRODUCT USED FOR UNKNOWN INDICATION
     Dosage: 650 MG, 1 D, ORAL
     Route: 048
     Dates: start: 20120502
  4. CLOZAPINE [Suspect]
     Indication: PRODUCT USED FOR UNKNOWN INDICATION
     Dosage: 650 MG, 1 D, ORAL
     Route: 048
     Dates: start: 20050701, end: 20120425
  5. ACETAMINOPHEN W/ CODEINE [Suspect]
     Indication: BACK PAIN
     Dosage: UNKNOWN
  6. SULPRID (SULPRIDE) [Concomitant]

REACTIONS (3)
  - DRUG INTERACTION [None]
  - BACK PAIN [None]
  - NEUTROPENIA [None]
